FAERS Safety Report 19656306 (Version 1)
Quarter: 2021Q3

REPORT INFORMATION
  Report Type: Spontaneous
  Country: US (occurrence: US)
  Receive Date: 20210804
  Receipt Date: 20210804
  Transmission Date: 20211014
  Serious: No
  Sender: FDA-Public Use
  Company Number: US-SA-2021SA255042

PATIENT
  Sex: Female
  Weight: 125.9 kg

DRUGS (2)
  1. AUBAGIO [Suspect]
     Active Substance: TERIFLUNOMIDE
     Indication: MULTIPLE SCLEROSIS
     Dosage: 14 MG, QD
     Route: 048
  2. TREMFYA [Concomitant]
     Active Substance: GUSELKUMAB
     Dosage: UNK
     Dates: end: 20210510

REACTIONS (2)
  - COVID-19 [Unknown]
  - Illness [Unknown]
